FAERS Safety Report 13469439 (Version 1)
Quarter: 2017Q2

REPORT INFORMATION
  Report Type: Report from Study
  Country: US (occurrence: US)
  Receive Date: 20170421
  Receipt Date: 20170421
  Transmission Date: 20170830
  Serious: Yes (Other)
  Sender: FDA-Public Use
  Company Number: US-AMGEN-USASL2017058401

PATIENT
  Age: 32 Year
  Sex: Female

DRUGS (1)
  1. ENBREL [Suspect]
     Active Substance: ETANERCEPT
     Indication: RHEUMATOID ARTHRITIS
     Dosage: 50 MG, QWK
     Route: 065

REACTIONS (7)
  - Injection site irritation [Unknown]
  - Tendon operation [Recovering/Resolving]
  - Injection site urticaria [Recovering/Resolving]
  - Injection site warmth [Recovering/Resolving]
  - Injection site reaction [Unknown]
  - Musculoskeletal stiffness [Recovering/Resolving]
  - Injection site swelling [Recovering/Resolving]
